FAERS Safety Report 9346816 (Version 3)
Quarter: 2013Q3

REPORT INFORMATION
  Report Type: Report from Study
  Country: US (occurrence: US)
  Receive Date: 20130613
  Receipt Date: 20130826
  Transmission Date: 20140515
  Serious: No
  Sender: FDA-Public Use
  Company Number: US-VERTEX PHARMACEUTICALS INC-2013-007010

PATIENT
  Age: 43 Year
  Sex: Male
  Weight: 88 kg

DRUGS (6)
  1. VX-950 (TELAPREVIR) [Suspect]
     Indication: HEPATITIS C
     Dosage: 750 MG, TID
     Route: 048
     Dates: start: 20130531
  2. PEGASYS [Suspect]
     Indication: HEPATITIS C
     Dosage: 180 ?G, QW
     Dates: start: 20130531
  3. RIBAVIRIN [Suspect]
     Indication: HEPATITIS C
     Dosage: 600 MG, BID
     Route: 048
     Dates: start: 20130531
  4. RIBAVIRIN [Suspect]
     Dosage: 800 MG, QD
     Route: 048
  5. AMLODIPINE [Concomitant]
     Dosage: 5 MG, UNK
  6. LISINOPRIL [Concomitant]
     Dosage: 10 MG, UNK

REACTIONS (5)
  - Influenza like illness [Recovered/Resolved]
  - Myalgia [Not Recovered/Not Resolved]
  - Fatigue [Not Recovered/Not Resolved]
  - Rash pruritic [Recovered/Resolved]
  - Pruritus [Not Recovered/Not Resolved]
